FAERS Safety Report 9571549 (Version 1)
Quarter: 2013Q3

REPORT INFORMATION
  Report Type: Spontaneous
  Country: US (occurrence: None)
  Receive Date: 20130930
  Receipt Date: 20130930
  Transmission Date: 20140515
  Serious: Yes (Hospitalization)
  Sender: FDA-Public Use
  Company Number: None

PATIENT
  Age: 61 Year
  Sex: Male
  Weight: 93.9 kg

DRUGS (6)
  1. PTH1-84 [Suspect]
     Indication: HYPOPARATHYROIDISM
     Route: 058
     Dates: start: 20070402
  2. LISINOPRIL [Concomitant]
  3. TRAMADOL [Concomitant]
  4. SYNTHROID [Concomitant]
  5. DIAZEPAM [Concomitant]
  6. MORPHINE [Concomitant]

REACTIONS (8)
  - Hypocalcaemia [None]
  - Ischaemia [None]
  - Vitamin D deficiency [None]
  - Renal failure acute [None]
  - Hypothyroidism [None]
  - Hypertension [None]
  - Diarrhoea [None]
  - Troponin increased [None]
